FAERS Safety Report 24964219 (Version 3)
Quarter: 2025Q1

REPORT INFORMATION
  Report Type: Report from Study
  Country: US (occurrence: US)
  Receive Date: 20250213
  Receipt Date: 20250227
  Transmission Date: 20250409
  Serious: Yes (Other)
  Sender: UCB
  Company Number: US-UCBSA-2024053680

PATIENT
  Sex: Female

DRUGS (4)
  1. FINTEPLA [Suspect]
     Active Substance: FENFLURAMINE
     Indication: Lennox-Gastaut syndrome
     Dosage: 5.9 MILLILITER, 2X/DAY (BID)
     Dates: start: 20240918
  2. FINTEPLA [Suspect]
     Active Substance: FENFLURAMINE
     Dosage: 3.6 MILLILITER, 2X/DAY (BID)
  3. FINTEPLA [Suspect]
     Active Substance: FENFLURAMINE
     Dosage: 4.6 MILLILITER, 2X/DAY (BID)
  4. FINTEPLA [Suspect]
     Active Substance: FENFLURAMINE
     Dosage: 5.9 MILLILITER, 2X/DAY (BID)
     Dates: start: 202502, end: 202502

REACTIONS (11)
  - Seizure [Not Recovered/Not Resolved]
  - Hallucination [Not Recovered/Not Resolved]
  - Blood pressure measurement [Recovering/Resolving]
  - Confusional state [Not Recovered/Not Resolved]
  - Hyperhidrosis [Not Recovered/Not Resolved]
  - Drooling [Not Recovered/Not Resolved]
  - Palpitations [Not Recovered/Not Resolved]
  - Pyrexia [Not Recovered/Not Resolved]
  - Insomnia [Not Recovered/Not Resolved]
  - Aggression [Not Recovered/Not Resolved]
  - Drug ineffective [Unknown]

NARRATIVE: CASE EVENT DATE: 20240101
